FAERS Safety Report 9104392 (Version 1)
Quarter: 2013Q1

REPORT INFORMATION
  Report Type: Spontaneous
  Country: US (occurrence: US)
  Receive Date: 20130220
  Receipt Date: 20130220
  Transmission Date: 20140127
  Serious: Yes (Hospitalization)
  Sender: FDA-Public Use
  Company Number: US-BAYER-2013-020972

PATIENT
  Age: 21 Year
  Sex: Female
  Weight: 89.8 kg

DRUGS (5)
  1. YAZ [Suspect]
     Indication: CONTRACEPTION
     Dosage: UNK
     Dates: start: 200607, end: 20070830
  2. CLOBETASOL PROPIONATE [Concomitant]
  3. NYSTATIN W/TRIAMCINOLONE [NYSTATIN,TRIAMCINOLONE] [Concomitant]
  4. CHLORHEXIDINE [Concomitant]
     Route: 048
  5. PROPRANOLOL [Concomitant]

REACTIONS (7)
  - Pulmonary embolism [Recovered/Resolved]
  - Infarction [None]
  - Myocarditis [None]
  - Injury [Recovered/Resolved]
  - Chest pain [Recovered/Resolved]
  - Dyspepsia [None]
  - Vomiting [None]
